FAERS Safety Report 6921503-1 (Version None)
Quarter: 2010Q3

REPORT INFORMATION
  Report Type: 
  Country: None (occurrence: None)
  Receive Date: 20100812
  Receipt Date: 20100805
  Transmission Date: 20110219
  Serious: Yes (Hospitalization)
  Sender: FDA-Public Use
  Company Number: PHHO2007US10936

PATIENT
  Sex: Female
  Weight: 117.2 kg

DRUGS (10)
  1. TASIGNA [Suspect]
     Indication: CHRONIC MYELOID LEUKAEMIA
     Dosage: 400 MG, BID
     Route: 048
     Dates: start: 20070621, end: 20070628
  2. FEXOFENADINE [Concomitant]
  3. LEVOTHYROXINE [Concomitant]
  4. SYNTHROID [Concomitant]
  5. POTASSIUM [Concomitant]
  6. ATENOLOL [Concomitant]
  7. HYDROCHLOROTHIAZIDE [Concomitant]
  8. ASPIRIN [Concomitant]
  9. PREMARIN [Concomitant]
  10. ZOLOFT [Concomitant]

REACTIONS (5)
  - ELECTROCARDIOGRAM QT PROLONGED [None]
  - HYPOKALAEMIA [None]
  - PAIN [None]
  - PLATELET COUNT INCREASED [None]
  - RASH [None]
